FAERS Safety Report 4508708-4 (Version None)
Quarter: 2004Q4

REPORT INFORMATION
  Report Type: 
  Country: None (occurrence: None)
  Receive Date: 20041123
  Receipt Date: 20040614
  Transmission Date: 20050328
  Serious: No
  Sender: FDA-Public Use
  Company Number: 2004-02596

PATIENT
  Age: 73 Year
  Sex: Female
  Weight: 54.5 kg

DRUGS (5)
  1. WELLBUTRIN SR [Suspect]
     Dosage: 150MG SINGLE DOSE
     Route: 048
     Dates: start: 20040609
  2. NAPROXEN [Suspect]
     Indication: BACK PAIN
     Dosage: 500MG SINGLE DOSE
     Route: 048
     Dates: start: 20040609
  3. MUCINEX [Suspect]
     Dosage: 600MG SINGLE DOSE
     Route: 048
     Dates: start: 20040609
  4. ZOVIRAX [Concomitant]
     Route: 065
  5. ASPIRIN [Concomitant]

REACTIONS (6)
  - EAR PRURITUS [None]
  - ERYTHEMA [None]
  - FEELING HOT [None]
  - PRURITUS [None]
  - PRURITUS GENERALISED [None]
  - RASH MACULAR [None]
